FAERS Safety Report 6936402-9 (Version None)
Quarter: 2010Q3

REPORT INFORMATION
  Report Type: 
  Country: None (occurrence: None)
  Receive Date: 20100823
  Receipt Date: 20100813
  Transmission Date: 20110219
  Serious: Yes (Hospitalization)
  Sender: FDA-Public Use
  Company Number: US-ASTRAZENECA-2010SE38080

PATIENT
  Age: 56 Year
  Sex: Female

DRUGS (3)
  1. NEXIUM [Suspect]
     Indication: GASTROOESOPHAGEAL REFLUX DISEASE
     Route: 048
  2. PROTONIX [Suspect]
     Dates: start: 20000101, end: 20091201
  3. PROTONIX [Suspect]
     Dates: start: 20100716

REACTIONS (4)
  - CONVULSION [None]
  - DRUG DOSE OMISSION [None]
  - DRUG EFFECT DECREASED [None]
  - GASTROOESOPHAGEAL REFLUX DISEASE [None]
